FAERS Safety Report 9880442 (Version 4)
Quarter: 2014Q2

REPORT INFORMATION
  Report Type: Spontaneous
  Country: IT (occurrence: IT)
  Receive Date: 20140207
  Receipt Date: 20140628
  Transmission Date: 20141212
  Serious: Yes (Other)
  Sender: FDA-Public Use
  Company Number: IT-ACCORD-021757

PATIENT
  Age: 57 Year
  Sex: Female

DRUGS (2)
  1. GEMCITABINE/GEMCITABINE HYDROCHLORIDE [Suspect]
     Indication: PANCREATIC CARCINOMA
     Route: 042
     Dates: start: 20131127, end: 20131224
  2. XELODA [Suspect]
     Indication: PANCREATIC CARCINOMA
     Dosage: XELODA 500 MG 120 FILM COATED TABLETS IN BLISTER-(ROCHE REGISTRATION LIMITED)
     Route: 048
     Dates: start: 20131127, end: 20131224

REACTIONS (2)
  - Neutropenia [Recovered/Resolved]
  - Leukopenia [Recovered/Resolved]
